FAERS Safety Report 21404915 (Version 1)
Quarter: 2022Q4

REPORT INFORMATION
  Report Type: Spontaneous
  Country: US (occurrence: None)
  Receive Date: 20221002
  Receipt Date: 20221002
  Transmission Date: 20230112
  Serious: Yes (Death)
  Sender: FDA-Public Use
  Company Number: None

PATIENT
  Age: 68 Year
  Sex: Male
  Weight: 103.87 kg

DRUGS (15)
  1. BRUKINSA [Suspect]
     Active Substance: ZANUBRUTINIB
     Indication: Pancytopenia
     Dosage: FREQUENCY : TWICE A DAY;?
     Route: 048
     Dates: start: 20220917
  2. BD NANO PEN NEEDLES [Concomitant]
  3. DIABETIC TESTING METER, STRIPS, AND LANCETS [Concomitant]
  4. BUMEX [Concomitant]
     Active Substance: BUMETANIDE
  5. ERGOCALCIFEROL [Concomitant]
     Active Substance: ERGOCALCIFEROL
  6. NOVOLOG [Concomitant]
     Active Substance: INSULIN ASPART
  7. LEVEMIR [Concomitant]
     Active Substance: INSULIN DETEMIR
  8. METOPROLOL [Concomitant]
     Active Substance: METOPROLOL
  9. ADALAT [Concomitant]
     Active Substance: NIFEDIPINE
  10. PROTONIX [Concomitant]
     Active Substance: PANTOPRAZOLE SODIUM
  11. VITAMIN B6 [Concomitant]
     Active Substance: PYRIDOXINE HYDROCHLORIDE
  12. ALTACE [Concomitant]
     Active Substance: RAMIPRIL
  13. LEVITRA [Concomitant]
     Active Substance: VARDENAFIL HYDROCHLORIDE
  14. ADVAIR DISKUS [Concomitant]
     Active Substance: FLUTICASONE PROPIONATE\SALMETEROL XINAFOATE
  15. ALBUTEROLM  SULFATE INHALER [Concomitant]

REACTIONS (1)
  - Feeling abnormal [None]

NARRATIVE: CASE EVENT DATE: 20221001
